FAERS Safety Report 5378121-9 (Version None)
Quarter: 2007Q3

REPORT INFORMATION
  Report Type: 
  Country: None (occurrence: None)
  Receive Date: 20070705
  Receipt Date: 20070626
  Transmission Date: 20080115
  Serious: Yes (Other)
  Sender: FDA-Public Use
  Company Number: PHBS2007BR10918

PATIENT
  Age: 53 Year
  Sex: Female
  Weight: 68 kg

DRUGS (10)
  1. PAMELOR [Suspect]
     Indication: DEPRESSION
     Dosage: 25 MG/DAY
     Route: 048
  2. ARCOXIA [Concomitant]
     Dosage: 90 MG, BID
     Route: 048
  3. LEXOTAN [Concomitant]
     Dosage: 3 MG, QD
     Route: 048
  4. LEXOTAN [Concomitant]
     Dosage: 3 MG EVERY 15 DAYS
     Route: 048
  5. LEXOTAN [Concomitant]
     Dosage: 3 MG EVERY 20 DAYS
     Route: 048
  6. GERIATON [Concomitant]
     Dosage: 1 TABLET/DAY
     Route: 048
  7. SYMBICORT [Concomitant]
     Dosage: 100 MG, UNK
  8. DIOSMIN [Concomitant]
     Dosage: 500 MG, UNK
  9. EUTHYROX [Concomitant]
     Dosage: 75 MG, QD
     Route: 048
  10. DIOCOMB SI [Suspect]
     Indication: HYPERTENSION
     Dosage: VALS 160 / SIMV 20 MG/DAY
     Route: 048

REACTIONS (14)
  - ABDOMINAL PAIN UPPER [None]
  - ASPHYXIA [None]
  - BACK PAIN [None]
  - CHEST PAIN [None]
  - EMOTIONAL DISORDER [None]
  - FACE OEDEMA [None]
  - HEADACHE [None]
  - INFLUENZA LIKE ILLNESS [None]
  - NASOPHARYNGITIS [None]
  - PAIN IN EXTREMITY [None]
  - PULMONARY CONGESTION [None]
  - RESPIRATION ABNORMAL [None]
  - SWOLLEN TONGUE [None]
  - VASODILATATION [None]
